FAERS Safety Report 7764558-7 (Version None)
Quarter: 2011Q3

REPORT INFORMATION
  Report Type: 
  Country: None (occurrence: None)
  Receive Date: 20110921
  Receipt Date: 20110914
  Transmission Date: 20111222
  Serious: Yes (Other)
  Sender: FDA-Public Use
  Company Number: US-TEVA-300770USA

PATIENT
  Age: 14 Year
  Sex: Male

DRUGS (1)
  1. QVAR 40 [Suspect]
     Route: 055

REACTIONS (1)
  - CUSHING'S SYNDROME [None]
